FAERS Safety Report 7968237-2 (Version None)
Quarter: 2011Q4

REPORT INFORMATION
  Report Type: 
  Country: None (occurrence: None)
  Receive Date: 20111209
  Receipt Date: 20111130
  Transmission Date: 20120403
  Serious: Yes (Other)
  Sender: FDA-Public Use
  Company Number: PHHY2011JP105206

PATIENT
  Age: 5 Year
  Sex: Female

DRUGS (1)
  1. IMATINIB MESYLATE [Suspect]

REACTIONS (2)
  - HUMAN HERPESVIRUS 6 INFECTION [None]
  - ACUTE GRAFT VERSUS HOST DISEASE [None]
